FAERS Safety Report 5183194-2 (Version None)
Quarter: 2006Q4

REPORT INFORMATION
  Report Type: 
  Country: None (occurrence: None)
  Receive Date: 20061220
  Receipt Date: 20051230
  Transmission Date: 20070319
  Serious: No
  Sender: FDA-Public Use
  Company Number: US-GLAXOSMITHKLINE-A0587261A

PATIENT
  Age: 35 Year
  Sex: Male

DRUGS (2)
  1. EQUATE NTS 21MG [Suspect]
     Indication: SMOKING CESSATION THERAPY
     Dates: start: 20051228, end: 20051229
  2. WELLBUTRIN [Concomitant]

REACTIONS (5)
  - ASTHENIA [None]
  - HEADACHE [None]
  - HYPERHIDROSIS [None]
  - NERVOUSNESS [None]
  - PALPITATIONS [None]
